FAERS Safety Report 10232370 (Version 1)
Quarter: 2014Q2

REPORT INFORMATION
  Report Type: Spontaneous
  Country: US (occurrence: None)
  Receive Date: 20140610
  Receipt Date: 20140610
  Transmission Date: 20141212
  Serious: Yes (Other)
  Sender: FDA-Public Use
  Company Number: None

PATIENT
  Age: 51 Year
  Sex: Female

DRUGS (3)
  1. COPAXONE [Suspect]
     Indication: MULTIPLE SCLEROSIS
     Dosage: 1 INJECTION 3 TIMES WEEK INJECTION
     Dates: start: 20140324, end: 20140414
  2. MULTI - VITAMIN [Concomitant]
  3. EYEDROPS [Concomitant]

REACTIONS (2)
  - Chest discomfort [None]
  - Dyspnoea [None]
